FAERS Safety Report 21584820 (Version 3)
Quarter: 2022Q4

REPORT INFORMATION
  Report Type: Report from Study
  Country: JP (occurrence: JP)
  Receive Date: 20221111
  Receipt Date: 20221220
  Transmission Date: 20230112
  Serious: Yes (Other)
  Sender: FDA-Public Use
  Company Number: JP-ONO-2022JP030265

PATIENT
  Age: 70 Year
  Sex: Female
  Weight: 45.5 kg

DRUGS (4)
  1. BRAFTOVI [Suspect]
     Active Substance: ENCORAFENIB
     Indication: Colon cancer
     Dosage: 225 MG, EVERYDAY
     Route: 048
     Dates: start: 20210329, end: 20210705
  2. BRAFTOVI [Suspect]
     Active Substance: ENCORAFENIB
     Dosage: 150 MG, EVERYDAY
     Route: 048
     Dates: start: 20210719, end: 20210720
  3. MEKTOVI [Suspect]
     Active Substance: BINIMETINIB
     Indication: Colon cancer
     Dosage: 60 MG, EVERYDAY
     Route: 048
     Dates: start: 20210419, end: 20210419
  4. CETUXIMAB [Concomitant]
     Active Substance: CETUXIMAB
     Indication: Colon cancer
     Dosage: 400 MG/M2
     Route: 065
     Dates: start: 20210329, end: 20210719

REACTIONS (2)
  - Serous retinal detachment [Recovered/Resolved]
  - Underdose [Unknown]

NARRATIVE: CASE EVENT DATE: 20210420
